FAERS Safety Report 8539121-0 (Version None)
Quarter: 2012Q3

REPORT INFORMATION
  Report Type: 
  Country: None (occurrence: None)
  Receive Date: 20120726
  Receipt Date: 20120712
  Transmission Date: 20120928
  Serious: Yes (Other)
  Sender: FDA-Public Use
  Company Number: IT-MYLANLABS-2012S1014589

PATIENT
  Age: 67 Year
  Sex: Female

DRUGS (10)
  1. CYCLOSPORINE [Concomitant]
     Indication: ANAEMIA HAEMOLYTIC AUTOIMMUNE
     Route: 065
  2. LINEZOLID [Interacting]
     Dosage: 600MG Q24-36H (PRESCRIBED DOSAGE 600MG Q48H)
     Route: 065
  3. PREDNISONE [Concomitant]
     Indication: ANAEMIA HAEMOLYTIC AUTOIMMUNE
     Route: 065
  4. FLUPHENAZINE HCL W/NORTRIPTYLINE HCL [Concomitant]
     Route: 065
  5. OMEPRAZOLE [Interacting]
     Route: 065
  6. OXCARBAZEPINE [Concomitant]
     Route: 065
  7. LINEZOLID [Interacting]
     Indication: NOCARDIOSIS
     Dosage: THEN 600MG Q24-36H AFTER D40
     Route: 065
  8. DOXAZOSIN MESYLATE [Concomitant]
     Route: 065
  9. CARVEDILOL [Suspect]
     Route: 065
  10. BARNIDIPINE [Interacting]
     Route: 065

REACTIONS (6)
  - HAEMOGLOBIN DECREASED [None]
  - PLATELET COUNT DECREASED [None]
  - HYPERLACTACIDAEMIA [None]
  - RED BLOOD CELL COUNT DECREASED [None]
  - HAEMATOTOXICITY [None]
  - DRUG INTERACTION [None]
